FAERS Safety Report 5545571-7 (Version None)
Quarter: 2007Q4

REPORT INFORMATION
  Report Type: 
  Country: None (occurrence: None)
  Receive Date: 20071206
  Receipt Date: 20071121
  Transmission Date: 20080405
  Serious: Yes (Death, Hospitalization)
  Sender: FDA-Public Use
  Company Number: 2007BM000188

PATIENT
  Age: 16 Month
  Sex: Male

DRUGS (2)
  1. PREDNISONE [Suspect]
     Indication: ENTERITIS
     Dosage: 1.8 MG; QOD
  2. ORAPRED [Suspect]

REACTIONS (10)
  - ACUTE RESPIRATORY DISTRESS SYNDROME [None]
  - ANAEMIA [None]
  - BLISTER [None]
  - BRONCHOPNEUMONIA [None]
  - COAGULOPATHY [None]
  - MULTI-ORGAN FAILURE [None]
  - NOCARDIA SEPSIS [None]
  - PNEUMONIA HERPES VIRAL [None]
  - RESPIRATORY FAILURE [None]
  - SEPTIC SHOCK [None]
